FAERS Safety Report 11447216 (Version 2)
Quarter: 2017Q1

REPORT INFORMATION
  Report Type: Spontaneous
  Country: US (occurrence: US)
  Receive Date: 20150831
  Receipt Date: 20170323
  Transmission Date: 20170428
  Serious: Yes (Other)
  Sender: FDA-Public Use
  Company Number: US-ELI_LILLY_AND_COMPANY-US200902007558

PATIENT
  Age: 36 Year
  Sex: Female

DRUGS (2)
  1. LEVOXYL [Concomitant]
     Active Substance: LEVOTHYROXINE SODIUM
     Dosage: 2.5 MG, UNK
  2. CYMBALTA [Suspect]
     Active Substance: DULOXETINE HYDROCHLORIDE
     Indication: BACK PAIN
     Dosage: 60 MG, UNKNOWN
     Route: 065
     Dates: start: 20090123, end: 20090212

REACTIONS (34)
  - Dysphoria [Unknown]
  - Visual impairment [Unknown]
  - Feeling abnormal [Not Recovered/Not Resolved]
  - Constipation [Recovered/Resolved]
  - Decreased appetite [Not Recovered/Not Resolved]
  - Muscle spasms [Unknown]
  - Tremor [Unknown]
  - Nausea [Unknown]
  - Dizziness [Unknown]
  - Anxiety [Unknown]
  - Urinary retention [Not Recovered/Not Resolved]
  - Decreased appetite [Unknown]
  - Sensory disturbance [Unknown]
  - Back pain [Unknown]
  - Insomnia [Not Recovered/Not Resolved]
  - Constipation [Not Recovered/Not Resolved]
  - Paraesthesia [Unknown]
  - Headache [Unknown]
  - Suicidal ideation [Unknown]
  - Agitation [Unknown]
  - Confusional state [Unknown]
  - Vision blurred [Unknown]
  - Fatigue [Unknown]
  - Vomiting [Unknown]
  - Irritability [Unknown]
  - Vertigo [Unknown]
  - Insomnia [Unknown]
  - Lethargy [Unknown]
  - Affect lability [Unknown]
  - Abdominal pain [Unknown]
  - Rectal spasm [Unknown]
  - Diarrhoea [Unknown]
  - Abdominal pain upper [Unknown]
  - Withdrawal syndrome [Unknown]

NARRATIVE: CASE EVENT DATE: 200902
